FAERS Safety Report 12603144 (Version 1)
Quarter: 2016Q3

REPORT INFORMATION
  Report Type: Spontaneous
  Country: IT (occurrence: IT)
  Receive Date: 20160728
  Receipt Date: 20160728
  Transmission Date: 20161109
  Serious: Yes (Hospitalization)
  Sender: FDA-Public Use
  Company Number: IT-PFIZER INC-2015365273

PATIENT
  Age: 67 Year
  Sex: Male

DRUGS (4)
  1. LEDERFOLIN [Suspect]
     Active Substance: LEUCOVORIN CALCIUM
     Indication: PANCREATIC CARCINOMA
     Dosage: 1 DF, CYCLIC
     Route: 042
     Dates: start: 20151012, end: 20151012
  2. CAMPTO [Suspect]
     Active Substance: IRINOTECAN
     Indication: PANCREATIC CARCINOMA
     Dosage: 270 MG, CYCLIC
     Route: 042
     Dates: start: 20151012, end: 20151012
  3. OXALIPLATIN ACCORD HEALTHCARE [Suspect]
     Active Substance: OXALIPLATIN
     Indication: PANCREATIC CARCINOMA
     Dosage: 170 MG, CYCLIC
     Route: 042
     Dates: start: 20151012, end: 20151012
  4. FLUOROURACIL. [Suspect]
     Active Substance: FLUOROURACIL
     Indication: PANCREATIC CARCINOMA
     Dosage: 4800 MG, CYCLIC PUMP FOR 46 HOURS)
     Route: 041
     Dates: start: 20151012, end: 20151013

REACTIONS (4)
  - Pyrexia [Recovered/Resolved]
  - Neutropenia [Recovered/Resolved]
  - Abdominal pain [Unknown]
  - Haemorrhoids [Unknown]

NARRATIVE: CASE EVENT DATE: 20151020
